FAERS Safety Report 9181336 (Version 2)
Quarter: 2013Q2

REPORT INFORMATION
  Report Type: Spontaneous
  Country: US (occurrence: US)
  Receive Date: 20130322
  Receipt Date: 20130517
  Transmission Date: 20140414
  Serious: Yes (Other)
  Sender: FDA-Public Use
  Company Number: US-PFIZER INC-2013092954

PATIENT
  Age: 46 Year
  Sex: Female

DRUGS (11)
  1. CHANTIX [Suspect]
     Indication: SMOKING CESSATION THERAPY
     Dosage: 0.5 MG AND 1 MG DAILY
     Route: 048
     Dates: start: 20100830, end: 20100927
  2. CELEBREX [Concomitant]
     Dosage: 200 MG, 1X/DAY
     Route: 048
     Dates: start: 20100830
  3. VALIUM [Concomitant]
     Dosage: 5 MG, 4X/DAY
     Route: 048
     Dates: start: 20100830
  4. CYMBALTA [Concomitant]
     Dosage: 90 MG, 1X/DAY
     Route: 048
     Dates: start: 20100830
  5. VICODIN [Concomitant]
     Indication: PAIN
     Dosage: 5/500MG, 1-2 TABLETS EVERY 6 HOURS
     Route: 048
     Dates: start: 20100830
  6. SYNTHROID [Concomitant]
     Dosage: 50 UG, 1X/DAY
     Route: 048
     Dates: start: 20100830
  7. COZAAR [Concomitant]
     Dosage: 50 MG, 1X/DAY
     Route: 048
     Dates: start: 20100830
  8. ROBAXIN [Concomitant]
     Dosage: 750 MG, EVERY 4 HRS
     Route: 048
     Dates: start: 20100830
  9. LOPRESSOR [Concomitant]
     Dosage: 25 MG, 2X/DAY
     Route: 048
     Dates: start: 20100830
  10. K-DUR [Concomitant]
     Dosage: 20 MEQ, 2X/DAY
     Route: 048
     Dates: start: 20100830
  11. TIOTROPIUM [Concomitant]
     Dosage: 18 UG, 1X/DAY, INHALE THE CONTENT OF CAPSULE
     Route: 048
     Dates: start: 20100830

REACTIONS (3)
  - Suicidal ideation [Unknown]
  - Homicidal ideation [Unknown]
  - Depression [Unknown]
